FAERS Safety Report 8452187-1 (Version None)
Quarter: 2012Q2

REPORT INFORMATION
  Report Type: 
  Country: None (occurrence: None)
  Receive Date: 20120620
  Receipt Date: 20120515
  Transmission Date: 20120825
  Serious: No
  Sender: FDA-Public Use
  Company Number: US-VERTEX PHARMACEUTICALS INC.-AE-2012-004729

PATIENT
  Sex: Male
  Weight: 69.916 kg

DRUGS (8)
  1. TEMAZEPAM [Concomitant]
     Route: 048
     Dates: start: 20120210
  2. HYDROCODONE [Concomitant]
  3. RIBAVIRIN [Concomitant]
     Indication: HEPATITIS C
     Route: 048
     Dates: start: 20120213
  4. PAROXETINE [Concomitant]
     Route: 048
  5. PEGASYS [Concomitant]
     Indication: HEPATITIS C
     Route: 058
     Dates: start: 20120213
  6. CHOLESTYRAMINE [Concomitant]
  7. FLUOXETINE [Concomitant]
     Route: 048
     Dates: start: 20120210
  8. INCIVEK [Suspect]
     Indication: HEPATITIS C
     Route: 048
     Dates: start: 20120213

REACTIONS (10)
  - EAR INFECTION [None]
  - FATIGUE [None]
  - APHAGIA [None]
  - RASH VESICULAR [None]
  - NAUSEA [None]
  - WHITE BLOOD CELL COUNT DECREASED [None]
  - MEMORY IMPAIRMENT [None]
  - ANAEMIA [None]
  - PLATELET COUNT DECREASED [None]
  - DYSPNOEA [None]
